FAERS Safety Report 7410976-6 (Version None)
Quarter: 2011Q1

REPORT INFORMATION
  Report Type: 
  Country: None (occurrence: None)
  Receive Date: 20110302
  Receipt Date: 20110114
  Transmission Date: 20110831
  Serious: No
  Sender: FDA-Public Use
  Company Number: 015891

PATIENT
  Sex: Female

DRUGS (2)
  1. PREDNISONE [Suspect]
     Indication: CROHN'S DISEASE
     Dosage: 40 MG ORAL, 35 MG ORAL, 30 MG ORAL, 25 MG ORAL, 20 MG ORAL, 15 MG ORAL, 10 MG ORAL
     Route: 048
  2. CIMZIA [Suspect]
     Indication: CROHN'S DISEASE
     Dosage: SUBCUTANEOUS
     Route: 058
     Dates: start: 20100503

REACTIONS (6)
  - TOOTH DISORDER [None]
  - COUGH [None]
  - NAIL DISORDER [None]
  - NASOPHARYNGITIS [None]
  - OROPHARYNGEAL PAIN [None]
  - SINUSITIS [None]
